FAERS Safety Report 4866660-6 (Version None)
Quarter: 2005Q4

REPORT INFORMATION
  Report Type: 
  Country: None (occurrence: None)
  Receive Date: 20051222
  Receipt Date: 20051209
  Transmission Date: 20060501
  Serious: Yes (Hospitalization)
  Sender: FDA-Public Use
  Company Number: 2005167981

PATIENT
  Age: 47 Year
  Sex: Male

DRUGS (3)
  1. ZITHROMAX [Suspect]
     Indication: CHRONIC SINUSITIS
     Dosage: ORAL
     Route: 048
     Dates: start: 20050201, end: 20050101
  2. ALL OTHER THERAPEUTIC PRODUCTS (ALL OTHER THERAPEUTIC PRODUCTS) [Concomitant]
  3. ANTI-DIABETIC (ANTI-DIABETICS) [Concomitant]

REACTIONS (4)
  - INTRAOCULAR PRESSURE INCREASED [None]
  - PAPILLOEDEMA [None]
  - TUNNEL VISION [None]
  - VISUAL FIELD DEFECT [None]
